FAERS Safety Report 9694886 (Version 4)
Quarter: 2014Q3

REPORT INFORMATION
  Report Type: Spontaneous
  Country: US (occurrence: US)
  Receive Date: 20131119
  Receipt Date: 20140731
  Transmission Date: 20150326
  Serious: No
  Sender: FDA-Public Use
  Company Number: US-PFIZER INC-2013326724

PATIENT
  Age: 58 Year
  Sex: Male
  Weight: 93 kg

DRUGS (13)
  1. PRAVASTATIN [Concomitant]
     Active Substance: PRAVASTATIN\PRAVASTATIN SODIUM
     Dosage: UNK
  2. FISH OIL [Concomitant]
     Active Substance: FISH OIL
     Dosage: UNK
  3. RESTORIL [Concomitant]
     Active Substance: TEMAZEPAM
     Dosage: UNK
  4. NORCO [Concomitant]
     Active Substance: ACETAMINOPHEN\HYDROCODONE BITARTRATE
     Dosage: UNK
  5. CENTRUM SILVER [Concomitant]
     Active Substance: VITAMINS
     Dosage: UNK
  6. PHENERGAN [Concomitant]
     Active Substance: PROMETHAZINE HYDROCHLORIDE
     Dosage: UNK
  7. AZOR [Concomitant]
     Active Substance: AMLODIPINE BESYLATE\OLMESARTAN MEDOXOMIL
     Dosage: UNK
  8. ZOFRAN [Concomitant]
     Active Substance: ONDANSETRON HYDROCHLORIDE
     Dosage: UNK
  9. HYDROCHLOROTHIAZIDE. [Concomitant]
     Active Substance: HYDROCHLOROTHIAZIDE
     Dosage: UNK
  10. SAW PALMETTO [Concomitant]
     Active Substance: SAW PALMETTO
     Dosage: UNK
  11. SUTENT [Suspect]
     Active Substance: SUNITINIB MALATE
     Indication: RENAL CANCER
     Dosage: 50 MG, UNK
     Dates: start: 20131024
  12. SUTENT [Suspect]
     Active Substance: SUNITINIB MALATE
     Dosage: 25 MG, UNK
     Dates: start: 20140321, end: 20140618
  13. ALLOPURINOL. [Concomitant]
     Active Substance: ALLOPURINOL
     Dosage: UNK

REACTIONS (6)
  - Palmar-plantar erythrodysaesthesia syndrome [Unknown]
  - Back pain [Unknown]
  - Nausea [Unknown]
  - Disease progression [Unknown]
  - Sciatica [Unknown]
  - Renal cancer [Unknown]
